FAERS Safety Report 4855931-5 (Version None)
Quarter: 2005Q4

REPORT INFORMATION
  Report Type: 
  Country: None (occurrence: None)
  Receive Date: 20051216
  Receipt Date: 20051207
  Transmission Date: 20060501
  Serious: Yes (Other)
  Sender: FDA-Public Use
  Company Number: PL-GLAXOSMITHKLINE-B0403388A

PATIENT
  Age: 72 Year
  Sex: Female

DRUGS (1)
  1. ZINACEF [Suspect]
     Indication: PROPHYLAXIS
     Route: 042
     Dates: start: 20051114, end: 20051114

REACTIONS (4)
  - BRADYCARDIA [None]
  - HYPOTENSION [None]
  - PALMAR ERYTHEMA [None]
  - SYNCOPE [None]
